FAERS Safety Report 25463962 (Version 1)
Quarter: 2025Q2

REPORT INFORMATION
  Report Type: Spontaneous
  Country: US (occurrence: US)
  Receive Date: 20250621
  Receipt Date: 20250621
  Transmission Date: 20250717
  Serious: No
  Sender: AUROBINDO
  Company Number: US-AUROBINDO-AUR-APL-2025-015250

PATIENT
  Age: 77 Year
  Sex: Female

DRUGS (1)
  1. ZANTAC 360 [Suspect]
     Active Substance: FAMOTIDINE
     Indication: Gastrooesophageal reflux disease
     Route: 065

REACTIONS (2)
  - Dyspepsia [Unknown]
  - Drug ineffective [Unknown]
